FAERS Safety Report 23989443 (Version 1)
Quarter: 2024Q2

REPORT INFORMATION
  Report Type: Other
  Country: CA (occurrence: CA)
  Receive Date: 20240619
  Receipt Date: 20240619
  Transmission Date: 20240716
  Serious: Yes (Hospitalization)
  Sender: FDA-Public Use
  Company Number: CA-MEDEXUS PHARMA, INC.-2024MED00266

PATIENT
  Age: 6 Year
  Sex: Male

DRUGS (5)
  1. METHOTREXATE [Suspect]
     Active Substance: METHOTREXATE
     Indication: Chemotherapy
  2. IMATINIB [Suspect]
     Active Substance: IMATINIB
     Indication: Chemotherapy
  3. MERCAPTOPURINE [Suspect]
     Active Substance: MERCAPTOPURINE
     Indication: Chemotherapy
  4. PREDNISONE [Suspect]
     Active Substance: PREDNISONE
     Indication: Chemotherapy
  5. VINCRISTINE SULFATE [Suspect]
     Active Substance: VINCRISTINE SULFATE
     Indication: Chemotherapy

REACTIONS (6)
  - Lip scab [Unknown]
  - Neutrophil count abnormal [Unknown]
  - HCoV-HKU1 infection [Unknown]
  - Body temperature increased [Unknown]
  - Febrile neutropenia [Unknown]
  - Herpes simplex [Unknown]
